FAERS Safety Report 7322266-0 (Version None)
Quarter: 2011Q1

REPORT INFORMATION
  Report Type: 
  Country: None (occurrence: None)
  Receive Date: 20110301
  Receipt Date: 20110214
  Transmission Date: 20110831
  Serious: No
  Sender: FDA-Public Use
  Company Number: US-BIOGENIDEC-2011BI000514

PATIENT
  Age: 43 Year
  Sex: Female

DRUGS (3)
  1. AMPYRA [Concomitant]
     Indication: GAIT DISTURBANCE
  2. TYSABRI [Suspect]
     Indication: MULTIPLE SCLEROSIS
     Route: 042
     Dates: start: 20101210
  3. AVONEX [Concomitant]
     Indication: MULTIPLE SCLEROSIS
     Route: 030

REACTIONS (7)
  - PERIPHERAL COLDNESS [None]
  - HEADACHE [None]
  - PAIN IN EXTREMITY [None]
  - INFLUENZA [None]
  - DRUG DOSE OMISSION [None]
  - FATIGUE [None]
  - HYPOAESTHESIA [None]
